FAERS Safety Report 11913236 (Version 1)
Quarter: 2016Q1

REPORT INFORMATION
  Report Type: Spontaneous
  Country: US (occurrence: US)
  Receive Date: 20160113
  Receipt Date: 20160113
  Transmission Date: 20160526
  Serious: Yes (Other)
  Sender: FDA-Public Use
  Company Number: US-ASTRAZENECA-2014SE94268

PATIENT
  Age: 50 Year
  Sex: Female

DRUGS (3)
  1. FASLODEX [Suspect]
     Active Substance: FULVESTRANT
     Indication: BREAST CANCER METASTATIC
     Dosage: MONTH
     Route: 030
     Dates: start: 201501
  2. ARIMIDEX [Suspect]
     Active Substance: ANASTROZOLE
     Indication: BREAST CANCER METASTATIC
     Route: 048
     Dates: start: 201410
  3. TAMOXIFEN [Suspect]
     Active Substance: TAMOXIFEN
     Indication: BREAST CANCER FEMALE
     Route: 048
     Dates: start: 1982, end: 1982

REACTIONS (19)
  - Breast cancer metastatic [Unknown]
  - Back pain [Not Recovered/Not Resolved]
  - Fatigue [Unknown]
  - Joint swelling [Not Recovered/Not Resolved]
  - Arthritis [Unknown]
  - Blood pressure increased [Unknown]
  - Gait disturbance [Unknown]
  - Spinal column stenosis [Unknown]
  - Peripheral swelling [Not Recovered/Not Resolved]
  - Hyperhidrosis [Unknown]
  - Body height decreased [Unknown]
  - Limb discomfort [Unknown]
  - Groin pain [Unknown]
  - Hot flush [Recovered/Resolved]
  - Tumour marker increased [Unknown]
  - Asthenia [Unknown]
  - Malaise [Unknown]
  - Pain in extremity [Unknown]
  - Arthralgia [Unknown]

NARRATIVE: CASE EVENT DATE: 1982
